FAERS Safety Report 10099759 (Version 2)
Quarter: 2014Q2

REPORT INFORMATION
  Report Type: Spontaneous
  Country: US (occurrence: US)
  Receive Date: 20140423
  Receipt Date: 20140423
  Transmission Date: 20141212
  Serious: No
  Sender: FDA-Public Use
  Company Number: US-GILEAD-2013-0071688

PATIENT
  Sex: Female

DRUGS (5)
  1. LETAIRIS [Suspect]
     Indication: PRODUCT USED FOR UNKNOWN INDICATION
     Dosage: 5 MG, QD
     Dates: start: 20130227
  2. LETAIRIS [Suspect]
     Dates: start: 20130225
  3. EPOPROSTENOL SODIUM [Concomitant]
  4. REVATIO [Concomitant]
  5. EPOPROSTENOL [Concomitant]

REACTIONS (3)
  - Pain in jaw [Unknown]
  - Nasal congestion [Recovering/Resolving]
  - Flushing [Unknown]
